FAERS Safety Report 10754149 (Version 1)
Quarter: 2015Q1

REPORT INFORMATION
  Report Type: Spontaneous
  Country: TW (occurrence: TW)
  Receive Date: 20150202
  Receipt Date: 20150202
  Transmission Date: 20150721
  Serious: Yes (Death, Hospitalization)
  Sender: FDA-Public Use
  Company Number: TW-ACCORD-028339

PATIENT
  Age: 48 Year
  Sex: Male

DRUGS (1)
  1. METHOTREXATE [Suspect]
     Active Substance: METHOTREXATE
     Indication: PSORIASIS

REACTIONS (15)
  - Erythema [Unknown]
  - Toxicity to various agents [Unknown]
  - Renal failure [Unknown]
  - Pruritus generalised [Unknown]
  - Leukopenia [Recovered/Resolved]
  - Ventricular arrhythmia [Fatal]
  - Diarrhoea [Unknown]
  - Febrile neutropenia [Unknown]
  - Mouth ulceration [Unknown]
  - Pancytopenia [Unknown]
  - Respiratory distress [Unknown]
  - Electrocardiogram ST segment elevation [Unknown]
  - Hypoalbuminaemia [Unknown]
  - Hypophagia [Unknown]
  - Shock [Unknown]
